FAERS Safety Report 10761962 (Version 1)
Quarter: 2015Q1

REPORT INFORMATION
  Report Type: Spontaneous
  Country: DK (occurrence: DK)
  Receive Date: 20150204
  Receipt Date: 20150204
  Transmission Date: 20150721
  Serious: Yes (Death, Hospitalization)
  Sender: FDA-Public Use
  Company Number: DK-SA-2015SA012373

PATIENT
  Age: 63 Year
  Sex: Male

DRUGS (7)
  1. PREDNISOLONE. [Concomitant]
     Active Substance: PREDNISOLONE
     Route: 048
  2. PANTOPRAZOLE [Concomitant]
     Active Substance: PANTOPRAZOLE SODIUM
     Route: 048
  3. ACETYLSALICYLIC ACID [Concomitant]
     Active Substance: ASPIRIN
     Route: 048
  4. IBUPROFEN. [Concomitant]
     Active Substance: IBUPROFEN
     Route: 048
  5. TRIPTORELIN [Concomitant]
     Active Substance: TRIPTORELIN
     Dosage: EVERY 6 MONTHS
     Route: 058
  6. DOCETAXEL. [Suspect]
     Active Substance: DOCETAXEL
     Indication: PROSTATE CANCER
     Route: 042
  7. DENOSUMAB [Concomitant]
     Active Substance: DENOSUMAB
     Route: 058

REACTIONS (13)
  - Oxygen saturation decreased [Fatal]
  - Blood lactic acid increased [Fatal]
  - Neutropenic colitis [Fatal]
  - C-reactive protein increased [Fatal]
  - Hypotension [Fatal]
  - Multi-organ failure [Fatal]
  - Diarrhoea haemorrhagic [Fatal]
  - Abdominal distension [Fatal]
  - Tachycardia [Fatal]
  - Leukopenia [Fatal]
  - Septic shock [Fatal]
  - Abdominal pain [Fatal]
  - Vomiting [Fatal]
